FAERS Safety Report 9646811 (Version 1)
Quarter: 2013Q4

REPORT INFORMATION
  Report Type: Spontaneous
  Country: US (occurrence: US)
  Receive Date: 20131027
  Receipt Date: 20131027
  Transmission Date: 20140711
  Serious: No
  Sender: FDA-Public Use
  Company Number: US-PURDUE-USA-2013-0103837

PATIENT
  Age: 54 Year
  Sex: Female

DRUGS (3)
  1. OXYCONTIN (NDA 22-272) [Suspect]
     Indication: ABDOMINAL PAIN
     Dosage: 15 MG, BID
     Route: 048
     Dates: end: 20130615
  2. OXYCONTIN (NDA 22-272) [Suspect]
     Indication: PELVIC PAIN
  3. HYDROCODONE [Concomitant]
     Indication: BREAKTHROUGH PAIN
     Dosage: 1 5/500 MG TABLET, PRN (UP TP 4)
     Route: 048

REACTIONS (2)
  - Pain [Not Recovered/Not Resolved]
  - Discomfort [Not Recovered/Not Resolved]
